FAERS Safety Report 14745558 (Version 2)
Quarter: 2018Q2

REPORT INFORMATION
  Report Type: Spontaneous
  Country: US (occurrence: US)
  Receive Date: 20180411
  Receipt Date: 20180416
  Transmission Date: 20180711
  Serious: Yes (Hospitalization, Other)
  Sender: FDA-Public Use
  Company Number: US-BAYER-2018-069865

PATIENT

DRUGS (2)
  1. IVACAFTOR [Concomitant]
     Active Substance: IVACAFTOR
     Indication: SINUS DISORDER
  2. CLARITIN [Suspect]
     Active Substance: LORATADINE
     Indication: SINUS DISORDER
     Dosage: UNK UNK, QD

REACTIONS (4)
  - Condition aggravated [None]
  - Hospitalisation [None]
  - Lung infection [None]
  - Drug ineffective [None]
